FAERS Safety Report 6923894-4 (Version None)
Quarter: 2010Q3

REPORT INFORMATION
  Report Type: 
  Country: None (occurrence: None)
  Receive Date: 20100813
  Receipt Date: 20100517
  Transmission Date: 20110219
  Serious: No
  Sender: FDA-Public Use
  Company Number: US-BRISTOL-MYERS SQUIBB COMPANY-15073067

PATIENT
  Age: 65 Year
  Sex: Male
  Weight: 58 kg

DRUGS (5)
  1. REYATAZ [Suspect]
     Indication: HIV INFECTION
     Dosage: ABOUT 5 YRS AGO
  2. PLAVIX [Suspect]
     Indication: PERIPHERAL ARTERIAL OCCLUSIVE DISEASE
     Dosage: ABOUT 1-? YEARS AGO
  3. NORVIR [Concomitant]
  4. COMBIVIR [Concomitant]
  5. SPIRIVA [Concomitant]

REACTIONS (1)
  - T-LYMPHOCYTE COUNT DECREASED [None]
